FAERS Safety Report 4414736-X (Version None)
Quarter: 2004Q3

REPORT INFORMATION
  Report Type: 
  Country: None (occurrence: None)
  Receive Date: 20040804
  Receipt Date: 20030801
  Transmission Date: 20050211
  Serious: No
  Sender: FDA-Public Use
  Company Number: US-BRISTOL-MYERS SQUIBB COMPANY-12343562

PATIENT
  Age: 78 Year
  Sex: Male
  Weight: 63 kg

DRUGS (2)
  1. GLUCOVANCE [Suspect]
     Indication: DIABETES MELLITUS
     Route: 048
     Dates: start: 20020201
  2. FLOMAX [Concomitant]

REACTIONS (6)
  - CELLULITIS [None]
  - DYSPEPSIA [None]
  - ERUCTATION [None]
  - FALL [None]
  - FATIGUE [None]
  - NAUSEA [None]
